FAERS Safety Report 6010512-5 (Version None)
Quarter: 2008Q4

REPORT INFORMATION
  Report Type: 
  Country: None (occurrence: None)
  Receive Date: 20081218
  Receipt Date: 20081211
  Transmission Date: 20090506
  Serious: Yes (Hospitalization)
  Sender: FDA-Public Use
  Company Number: ES-JNJFOC-20081203395

PATIENT
  Age: 38 Year
  Sex: Female

DRUGS (4)
  1. TAVANIC [Suspect]
     Indication: PYELONEPHRITIS ACUTE
     Route: 042
  2. IBUPROFEN [Suspect]
     Indication: PYELONEPHRITIS ACUTE
     Route: 065
  3. ENANTYUM [Suspect]
     Indication: PYELONEPHRITIS ACUTE
     Route: 048
  4. NOLOTIL [Suspect]
     Indication: PYELONEPHRITIS ACUTE
     Route: 065

REACTIONS (3)
  - APLASTIC ANAEMIA [None]
  - DRUG EXPOSURE DURING PREGNANCY [None]
  - PANCYTOPENIA [None]
